FAERS Safety Report 4491826-7 (Version None)
Quarter: 2004Q4

REPORT INFORMATION
  Report Type: 
  Country: None (occurrence: None)
  Receive Date: 20041028
  Receipt Date: 20041028
  Transmission Date: 20050328
  Serious: Yes (Hospitalization)
  Sender: FDA-Public Use
  Company Number: None

PATIENT
  Sex: Female
  Weight: 34.4734 kg

DRUGS (2)
  1. TAXOTERE [Suspect]
     Indication: PANCREATIC CARCINOMA
     Dosage: 37.8MG   EVERY 21 WEEKS   INTRAVENOU
     Route: 042
     Dates: start: 20041021, end: 20041021
  2. CAPECITABINE [Suspect]
     Indication: PANCREATIC CARCINOMA
     Dosage: 1000 MG   FOR 14 DAYS   ORAL
     Route: 048
     Dates: start: 20041021, end: 20041025

REACTIONS (2)
  - CANCER PAIN [None]
  - MENTAL STATUS CHANGES [None]
